FAERS Safety Report 8540693-0 (Version None)
Quarter: 2012Q3

REPORT INFORMATION
  Report Type: 
  Country: None (occurrence: None)
  Receive Date: 20120726
  Receipt Date: 20120717
  Transmission Date: 20120928
  Serious: Yes (Other)
  Sender: FDA-Public Use
  Company Number: SE-JNJFOC-20120710562

PATIENT
  Sex: Male

DRUGS (2)
  1. PREDNISONE [Concomitant]
     Route: 065
  2. REMICADE [Suspect]
     Indication: ANKYLOSING SPONDYLITIS
     Dosage: STRENGTH 100 MG
     Route: 042
     Dates: start: 20050422

REACTIONS (2)
  - PERIODONTITIS [None]
  - NEUROPATHY PERIPHERAL [None]
